FAERS Safety Report 4306154-X (Version None)
Quarter: 2004Q1

REPORT INFORMATION
  Report Type: 
  Country: None (occurrence: None)
  Receive Date: 20040225
  Receipt Date: 20030311
  Transmission Date: 20041129
  Serious: No
  Sender: FDA-Public Use
  Company Number: US-BRISTOL-MYERS SQUIBB COMPANY-12209128

PATIENT
  Age: 62 Year
  Sex: Male
  Weight: 134 kg

DRUGS (7)
  1. EXCEDRIN (MIGRAINE) [Suspect]
     Indication: HEADACHE
     Route: 048
     Dates: start: 20030307, end: 20030310
  2. EXCEDRIN (MIGRAINE) [Suspect]
     Indication: PAIN IN EXTREMITY
     Route: 048
     Dates: start: 20030307, end: 20030310
  3. ALCOHOL [Concomitant]
     Dosage: DOSAGE:  ^QUITE A BIT^
     Dates: start: 20030305, end: 20030306
  4. CAPOTEN [Concomitant]
  5. HYDROCHLOROTHIAZIDE [Concomitant]
  6. CARDIZEM [Concomitant]
  7. ZOCOR [Concomitant]

REACTIONS (3)
  - DEHYDRATION [None]
  - PENILE DISCHARGE [None]
  - PENILE HAEMORRHAGE [None]
